FAERS Safety Report 20214132 (Version 3)
Quarter: 2022Q1

REPORT INFORMATION
  Report Type: Report from Study
  Country: DK (occurrence: DK)
  Receive Date: 20211221
  Receipt Date: 20220110
  Transmission Date: 20220423
  Serious: Yes (Hospitalization)
  Sender: FDA-Public Use
  Company Number: DK-PFIZER INC-202101780043

PATIENT
  Age: 16 Year
  Sex: Male
  Weight: 67.5 kg

DRUGS (14)
  1. INOTUZUMAB OZOGAMICIN [Suspect]
     Active Substance: INOTUZUMAB OZOGAMICIN
     Dosage: ONCE PER WEEK
     Dates: start: 20210719, end: 20210823
  2. METHOTREXATE [Suspect]
     Active Substance: METHOTREXATE
     Dosage: EVERY 12 WEEKS
     Route: 037
     Dates: start: 20210830
  3. METHOTREXATE SODIUM [Suspect]
     Active Substance: METHOTREXATE SODIUM
     Dosage: ONCE PER WEEK
     Route: 048
     Dates: start: 20210830
  4. MERCAPTOPURINE [Suspect]
     Active Substance: MERCAPTOPURINE
     Dosage: 75 MG/M2, DAILY
     Dates: start: 20210830
  5. VINCRISTINE SULFATE [Suspect]
     Active Substance: VINCRISTINE SULFATE
     Dosage: EVERY FOURTH WEEK
     Dates: start: 20210830
  6. DEXAMETHASONE [Suspect]
     Active Substance: DEXAMETHASONE
     Dosage: EVERY FOURTH WEEK
  7. SOLU-MEDROL [Concomitant]
     Active Substance: METHYLPREDNISOLONE SODIUM SUCCINATE
     Indication: Premedication
     Dosage: UNK
     Route: 042
     Dates: start: 20210719, end: 20210823
  8. PALONOSETRON [Concomitant]
     Active Substance: PALONOSETRON
     Indication: Nausea
     Dosage: UNK
     Route: 042
     Dates: start: 20210719, end: 20210823
  9. ZOFRAN [Concomitant]
     Active Substance: ONDANSETRON HYDROCHLORIDE
     Indication: Nausea
     Dosage: UNK
     Route: 048
     Dates: start: 20201022
  10. VOGALENE [Concomitant]
     Active Substance: METOPIMAZINE
     Indication: Nausea
     Dosage: UNK
     Route: 048
     Dates: start: 20201014
  11. ACETAMINOPHEN [Concomitant]
     Active Substance: ACETAMINOPHEN
     Dosage: UNK
  12. UNIKALK SILVER [Concomitant]
     Dosage: UNK
  13. FISH OIL\OMEGA-3 FATTY ACIDS [Concomitant]
     Active Substance: FISH OIL\OMEGA-3 FATTY ACIDS
     Dosage: EASYCHEW
  14. MAGNESIA [MAGNESIUM OXIDE] [Concomitant]
     Dosage: DAK

REACTIONS (1)
  - Hepatic failure [Recovering/Resolving]

NARRATIVE: CASE EVENT DATE: 20211001
